FAERS Safety Report 4471603-3 (Version None)
Quarter: 2004Q4

REPORT INFORMATION
  Report Type: 
  Country: None (occurrence: None)
  Receive Date: 20041012
  Receipt Date: 20041004
  Transmission Date: 20050328
  Serious: Yes (Hospitalization)
  Sender: FDA-Public Use
  Company Number: 2004JP001793

PATIENT
  Age: 37 Year
  Sex: Male

DRUGS (2)
  1. SAWACILLIN [Suspect]
     Indication: PERIODONTITIS
     Dosage: 250MG THREE TIMES PER DAY
     Route: 048
     Dates: start: 20040517
  2. DICLOFENAC SODIUM [Suspect]
     Indication: DRUG USE FOR UNKNOWN INDICATION
     Dosage: 150MG UNKNOWN
     Route: 048
     Dates: start: 20040517

REACTIONS (1)
  - DYSPNOEA [None]
